FAERS Safety Report 9652187 (Version 1)
Quarter: 2013Q4

REPORT INFORMATION
  Report Type: Spontaneous
  Country: US (occurrence: None)
  Receive Date: 20131025
  Receipt Date: 20131025
  Transmission Date: 20140711
  Serious: Yes (Hospitalization)
  Sender: FDA-Public Use
  Company Number: 2013-1468

PATIENT
  Age: 69 Year
  Sex: Male

DRUGS (9)
  1. KYPROLIS (CARFILZOMIB) (INJECTION FOR INFUSION) (CARFILZOMIB) [Suspect]
     Indication: PLASMA CELL MYELOMA
     Dosage: 39.6 MG, 2 IN 1 WK, INTRAVENOUS
     Route: 042
     Dates: start: 20130815
  2. CYTOXAN (CYCLOPHOSPHAMIDE) [Concomitant]
  3. DEXAMETHASONE [Concomitant]
  4. ALBUTEROL (SALBUTAMOL) [Concomitant]
  5. METOPROLOL [Concomitant]
  6. ONDANSETRON [Concomitant]
  7. LASIX (FUROSEMIDE) [Concomitant]
  8. IBUPROFEN [Concomitant]
  9. ALOXI (PALONOSETRON HYDROCHLORIDE) [Concomitant]

REACTIONS (19)
  - Stomatitis [None]
  - Aphagia [None]
  - Burning sensation [None]
  - Dyspepsia [None]
  - White blood cell count increased [None]
  - Blood urea increased [None]
  - Blood creatinine increased [None]
  - Oedema peripheral [None]
  - Oedema peripheral [None]
  - Dyspnoea [None]
  - Blood pressure increased [None]
  - Heart rate increased [None]
  - Oxygen saturation decreased [None]
  - Haemoglobin decreased [None]
  - Dehydration [None]
  - Malaise [None]
  - Mental status changes [None]
  - Disease progression [None]
  - Nausea [None]
